FAERS Safety Report 6210036-6 (Version None)
Quarter: 2009Q2

REPORT INFORMATION
  Report Type: 
  Country: None (occurrence: None)
  Receive Date: 20090601
  Receipt Date: 20090521
  Transmission Date: 20091009
  Serious: Yes (Other)
  Sender: FDA-Public Use
  Company Number: PHHY2009CA19873

PATIENT
  Sex: Male

DRUGS (1)
  1. EXJADE [Suspect]
     Indication: IRON OVERLOAD
     Dosage: 1750 MG, UNK
     Route: 048
     Dates: start: 20090301, end: 20090514

REACTIONS (2)
  - DYSPNOEA [None]
  - HEART RATE IRREGULAR [None]
